FAERS Safety Report 15624975 (Version 1)
Quarter: 2018Q4

REPORT INFORMATION
  Report Type: Spontaneous
  Country: FR (occurrence: FR)
  Receive Date: 20181116
  Receipt Date: 20181116
  Transmission Date: 20190205
  Serious: Yes (Hospitalization)
  Sender: FDA-Public Use
  Company Number: FR-TEVA-2018-FR-974768

PATIENT
  Age: 78 Year
  Sex: Male
  Weight: 91 kg

DRUGS (11)
  1. AMLODIPINE [Concomitant]
     Active Substance: AMLODIPINE BESYLATE
  2. ALPRESS [Concomitant]
     Active Substance: PRAZOSIN
  3. VALSARTAN. [Suspect]
     Active Substance: VALSARTAN
     Indication: HYPERTENSION
     Dosage: 40 MILLIGRAM DAILY;
     Route: 048
     Dates: start: 20140916, end: 20141002
  4. NEBIVOLOL. [Concomitant]
     Active Substance: NEBIVOLOL
  5. UVEDOSE [Concomitant]
     Active Substance: CHOLECALCIFEROL
  6. LANTUS [Concomitant]
     Active Substance: INSULIN GLARGINE
  7. EUCREAS [Suspect]
     Active Substance: METFORMIN HYDROCHLORIDE\VILDAGLIPTIN
     Indication: TYPE 2 DIABETES MELLITUS
     Route: 048
     Dates: end: 20141002
  8. ZYLORIC [Concomitant]
     Active Substance: ALLOPURINOL
  9. LASILIX 40 MG, COMPRIME SECABLE [Suspect]
     Active Substance: FUROSEMIDE
     Indication: HYPERTENSION
     Dosage: 2 DOSAGE FORMS DAILY;
     Route: 048
     Dates: end: 20141002
  10. REPAGLINIDE. [Concomitant]
     Active Substance: REPAGLINIDE
  11. PLAVIX [Concomitant]
     Active Substance: CLOPIDOGREL BISULFATE

REACTIONS (1)
  - Acute kidney injury [Recovered/Resolved]

NARRATIVE: CASE EVENT DATE: 20141002
